FAERS Safety Report 22123287 (Version 3)
Quarter: 2023Q2

REPORT INFORMATION
  Report Type: Other
  Country: IN (occurrence: None)
  Receive Date: 20230322
  Receipt Date: 20230601
  Transmission Date: 20230722
  Serious: Yes (Hospitalization, Other)
  Sender: FDA-Public Use
  Company Number: IN-ROCHE-3306758

PATIENT
  Age: 69 Year
  Sex: Male

DRUGS (1)
  1. TECENTRIQ [Suspect]
     Active Substance: ATEZOLIZUMAB
     Indication: Hepatocellular carcinoma
     Route: 041
     Dates: start: 20230214

REACTIONS (7)
  - Hepatic failure [Unknown]
  - Hepatic encephalopathy [Unknown]
  - Weight decreased [Unknown]
  - Oedema [Unknown]
  - Illness [Unknown]
  - Renal disorder [Unknown]
  - Hepatorenal syndrome [Unknown]
